FAERS Safety Report 10081530 (Version 3)
Quarter: 2014Q2

REPORT INFORMATION
  Report Type: Spontaneous
  Country: US (occurrence: US)
  Receive Date: 20140416
  Receipt Date: 20140424
  Transmission Date: 20141212
  Serious: Yes (Hospitalization)
  Sender: FDA-Public Use
  Company Number: US-JNJFOC-20140406398

PATIENT
  Age: 77 Year
  Sex: Female
  Weight: 86 kg

DRUGS (18)
  1. XARELTO [Suspect]
     Indication: CEREBROVASCULAR ACCIDENT PROPHYLAXIS
     Route: 048
     Dates: start: 20131002
  2. XARELTO [Suspect]
     Indication: ATRIAL FLUTTER
     Route: 048
     Dates: start: 20131002
  3. PLAVIX [Suspect]
     Indication: ATRIAL FIBRILLATION
     Route: 048
  4. CILOSTAZOL [Suspect]
     Indication: CORONARY ARTERY DISEASE
     Route: 048
  5. ASPIRIN [Suspect]
     Indication: CORONARY ARTERY DISEASE
     Route: 065
  6. ACETAMINOPHEN [Concomitant]
     Route: 065
  7. AMBIEN [Concomitant]
     Route: 065
  8. HUMALOG [Concomitant]
     Route: 065
  9. PROTONIX [Concomitant]
     Route: 065
  10. DILTIAZEM [Concomitant]
     Route: 065
  11. KCL [Concomitant]
     Route: 065
  12. LASIX [Concomitant]
     Route: 065
  13. RANEXA [Concomitant]
     Route: 065
  14. NTG [Concomitant]
     Route: 065
  15. COLACE [Concomitant]
     Route: 065
  16. FLUOXETINE [Concomitant]
     Route: 065
  17. SIMVASTATINWW [Concomitant]
     Route: 065
  18. COREG [Concomitant]
     Route: 065

REACTIONS (3)
  - Upper gastrointestinal haemorrhage [Recovered/Resolved]
  - International normalised ratio increased [Recovering/Resolving]
  - Anaemia [Recovering/Resolving]
